FAERS Safety Report 8416396-X (Version None)
Quarter: 2012Q2

REPORT INFORMATION
  Report Type: 
  Country: None (occurrence: None)
  Receive Date: 20120606
  Receipt Date: 20120525
  Transmission Date: 20120825
  Serious: Yes (Other)
  Sender: FDA-Public Use
  Company Number: FR-B.I. PHARMACEUTICALS,INC./RIDGEFIELD-2012-FF-00644FF

PATIENT
  Sex: Male
  Weight: 90 kg

DRUGS (5)
  1. OLMESARTAN MEDOXOMIL [Concomitant]
     Dosage: 20 MG
     Route: 048
  2. ATORVASTATIN [Concomitant]
     Route: 048
  3. PRAXILENE [Concomitant]
     Dosage: 300 MG
     Route: 048
  4. PRADAXA [Suspect]
     Dosage: 220 MG
     Route: 048
  5. REPAGLINIDE [Concomitant]
     Dosage: 1 MG
     Route: 048

REACTIONS (3)
  - DYSPNOEA [None]
  - FATIGUE [None]
  - ANAEMIA [None]
